FAERS Safety Report 15745178 (Version 1)
Quarter: 2018Q4

REPORT INFORMATION
  Report Type: Spontaneous
  Country: US (occurrence: US)
  Receive Date: 20181220
  Receipt Date: 20181220
  Transmission Date: 20190205
  Serious: No
  Sender: FDA-Public Use
  Company Number: US-EAGLE PHARMACEUTICALS, INC.-US-2018EAG000043

PATIENT

DRUGS (5)
  1. RITUXIMAB. [Concomitant]
     Active Substance: RITUXIMAB
     Indication: PRODUCT USED FOR UNKNOWN INDICATION
     Dosage: UNK
     Route: 065
  2. ATORVASTATIN [Concomitant]
     Active Substance: ATORVASTATIN
     Indication: PRODUCT USED FOR UNKNOWN INDICATION
     Dosage: UNK
     Route: 065
  3. LOSARTAN. [Concomitant]
     Active Substance: LOSARTAN
     Indication: PRODUCT USED FOR UNKNOWN INDICATION
     Dosage: UNK
     Route: 065
  4. NEULASTA [Concomitant]
     Active Substance: PEGFILGRASTIM
     Indication: PRODUCT USED FOR UNKNOWN INDICATION
     Dosage: UNK
     Route: 065
  5. BENDEKA [Suspect]
     Active Substance: BENDAMUSTINE HYDROCHLORIDE
     Indication: LYMPHOMA
     Dosage: 160 MG, DILUTED WITH 500 ML DILUENT OVER 30 MINUTES
     Route: 042
     Dates: start: 2018

REACTIONS (2)
  - Product preparation issue [Unknown]
  - Incorrect product administration duration [Unknown]

NARRATIVE: CASE EVENT DATE: 2018
